FAERS Safety Report 16675346 (Version 3)
Quarter: 2021Q1

REPORT INFORMATION
  Report Type: Report from Study
  Country: TR (occurrence: TR)
  Receive Date: 20190806
  Receipt Date: 20210223
  Transmission Date: 20210419
  Serious: Yes (Death, Hospitalization, Other)
  Sender: FDA-Public Use
  Company Number: TR-ALEXION-A201911076

PATIENT
  Age: 18 Month
  Sex: Male

DRUGS (1)
  1. SOLIRIS [Suspect]
     Active Substance: ECULIZUMAB
     Indication: ATYPICAL HAEMOLYTIC URAEMIC SYNDROME
     Dosage: 300 MG, QW
     Route: 042
     Dates: start: 20190513

REACTIONS (5)
  - Death [Fatal]
  - Dysphagia [Unknown]
  - Aspiration [Unknown]
  - Pneumonia [Not Recovered/Not Resolved]
  - Malnutrition [Unknown]
